FAERS Safety Report 9705487 (Version 1)
Quarter: 2013Q4

REPORT INFORMATION
  Report Type: Report from Study
  Country: FR (occurrence: FR)
  Receive Date: 20131122
  Receipt Date: 20131122
  Transmission Date: 20140711
  Serious: Yes (Hospitalization)
  Sender: FDA-Public Use
  Company Number: FR-TEVA-445634USA

PATIENT
  Age: 62 Year
  Sex: Male

DRUGS (13)
  1. BENDAMUSTINE [Suspect]
     Indication: PLASMA CELL MYELOMA
     Dates: start: 20120424, end: 20120728
  2. VELCADE [Suspect]
     Indication: PLASMA CELL MYELOMA
     Dates: start: 20090524, end: 20090907
  3. VELCADE [Suspect]
     Dates: start: 20120130, end: 20120329
  4. VELCADE [Suspect]
     Dates: start: 20120906, end: 20121005
  5. DEXAMETHASONE [Suspect]
     Indication: PLASMA CELL MYELOMA
     Dates: start: 20090524, end: 20090907
  6. DEXAMETHASONE [Suspect]
     Dates: start: 20120130, end: 20120329
  7. TEVAGRASTIM [Concomitant]
     Indication: PRODUCT USED FOR UNKNOWN INDICATION
     Dates: start: 20120916, end: 20130922
  8. TEVAGRASTIM [Concomitant]
     Dates: start: 20121006, end: 20131010
  9. VANCOMYCIN [Concomitant]
     Indication: PRODUCT USED FOR UNKNOWN INDICATION
     Dates: start: 20120402, end: 201208
  10. VANCOMYCIN [Concomitant]
     Indication: INFECTION PROPHYLAXIS
     Dates: start: 20120810
  11. VANCOMYCIN [Concomitant]
     Dates: start: 20120924, end: 20120930
  12. ROCEPHIN [Concomitant]
     Indication: PRODUCT USED FOR UNKNOWN INDICATION
     Dates: start: 20120601
  13. ROCEPHIN [Concomitant]
     Dates: start: 20121018, end: 20121022

REACTIONS (3)
  - Aplasia [Recovered/Resolved]
  - Thrombocytopenic purpura [Unknown]
  - Clostridium difficile infection [Unknown]
